FAERS Safety Report 5189371-9 (Version None)
Quarter: 2006Q4

REPORT INFORMATION
  Report Type: 
  Country: None (occurrence: None)
  Receive Date: 20061221
  Receipt Date: 20061211
  Transmission Date: 20070319
  Serious: Yes (Hospitalization)
  Sender: FDA-Public Use
  Company Number: GB-MERCK-0612GBR00073

PATIENT
  Age: 54 Year
  Sex: Male

DRUGS (3)
  1. ZOCOR [Suspect]
     Route: 048
  2. RAMIPRIL [Concomitant]
     Route: 065
  3. RANITIDINE [Concomitant]
     Route: 065

REACTIONS (2)
  - BLOOD PRESSURE DECREASED [None]
  - OVERDOSE [None]
